FAERS Safety Report 7449619-4 (Version None)
Quarter: 2011Q2

REPORT INFORMATION
  Report Type: 
  Country: None (occurrence: None)
  Receive Date: 20110502
  Receipt Date: 20110428
  Transmission Date: 20111010
  Serious: Yes (Hospitalization)
  Sender: FDA-Public Use
  Company Number: RO-BAYER-2011-036207

PATIENT
  Age: 3 Year
  Sex: Male

DRUGS (1)
  1. ACETYLSALICYLIC ACID SRT [Suspect]
     Indication: HYPERTHERMIA
     Route: 048

REACTIONS (8)
  - GENERAL PHYSICAL HEALTH DETERIORATION [None]
  - VOMITING [None]
  - DEHYDRATION [None]
  - MELAENA [None]
  - PYLORIC STENOSIS [None]
  - HAEMATEMESIS [None]
  - PEPTIC ULCER HAEMORRHAGE [None]
  - HAEMORRHAGIC ANAEMIA [None]
